FAERS Safety Report 24670179 (Version 2)
Quarter: 2024Q4

REPORT INFORMATION
  Report Type: Spontaneous
  Country: US (occurrence: US)
  Receive Date: 20241127
  Receipt Date: 20241202
  Transmission Date: 20250115
  Serious: No
  Sender: ALKERMES
  Company Number: US-ALKERMES INC.-ALK-2024-003002

PATIENT
  Age: 43 Year
  Sex: Male

DRUGS (4)
  1. LYBALVI [Suspect]
     Active Substance: OLANZAPINE\SAMIDORPHAN L-MALATE
     Indication: Schizoaffective disorder
     Dosage: 15/ 10 MILLIGRAM, QD
     Route: 048
     Dates: start: 2024, end: 2024
  2. LYBALVI [Suspect]
     Active Substance: OLANZAPINE\SAMIDORPHAN L-MALATE
     Dosage: 10/ 10 MILLIGRAM, QD
     Route: 048
     Dates: start: 2024, end: 2024
  3. OLANZAPINE [Concomitant]
     Active Substance: OLANZAPINE
     Indication: Product used for unknown indication
     Dosage: UNK
     Route: 065
     Dates: start: 2024, end: 2024
  4. OLANZAPINE [Concomitant]
     Active Substance: OLANZAPINE
     Dosage: UNK
     Route: 065
     Dates: end: 2024

REACTIONS (6)
  - Drug ineffective for unapproved indication [Recovered/Resolved]
  - Psychotic symptom [Recovered/Resolved]
  - Hallucination, auditory [Recovered/Resolved]
  - Agitation [Recovered/Resolved]
  - Road traffic accident [Recovered/Resolved]
  - Off label use [Recovered/Resolved]

NARRATIVE: CASE EVENT DATE: 20240101
